FAERS Safety Report 5113838-2 (Version None)
Quarter: 2006Q3

REPORT INFORMATION
  Report Type: 
  Country: None (occurrence: None)
  Receive Date: 20060921
  Receipt Date: 20060921
  Transmission Date: 20061208
  Serious: No
  Sender: FDA-Public Use
  Company Number: None

PATIENT
  Age: 40 Year
  Sex: Male

DRUGS (1)
  1. PHENERGAN [Suspect]
     Dosage: 20 MG X1 IV
     Route: 042
     Dates: start: 20060916

REACTIONS (1)
  - RESTLESS LEGS SYNDROME [None]
